FAERS Safety Report 18419340 (Version 1)
Quarter: 2020Q4

REPORT INFORMATION
  Report Type: Spontaneous
  Country: US (occurrence: US)
  Receive Date: 20201023
  Receipt Date: 20201023
  Transmission Date: 20210114
  Serious: No
  Sender: FDA-Public Use
  Company Number: None

PATIENT
  Age: 42 Year
  Sex: Female
  Weight: 70.2 kg

DRUGS (3)
  1. PREDNISONE 50MG TAB [Suspect]
     Active Substance: PREDNISONE
     Indication: RASH
     Dosage: ?          QUANTITY:5 TABLET(S);?
     Route: 048
     Dates: start: 20201021
  2. HYDROXYZINE HCL [Concomitant]
     Active Substance: HYDROXYZINE HYDROCHLORIDE
  3. MULTIVITAMINS [Concomitant]
     Active Substance: VITAMINS

REACTIONS (2)
  - Thirst [None]
  - Dry mouth [None]

NARRATIVE: CASE EVENT DATE: 20201023
